FAERS Safety Report 4338606-0 (Version None)
Quarter: 2004Q2

REPORT INFORMATION
  Report Type: 
  Country: None (occurrence: None)
  Receive Date: 20040409
  Receipt Date: 20040330
  Transmission Date: 20050107
  Serious: Yes (Hospitalization)
  Sender: FDA-Public Use
  Company Number: 04P-056-0247918-00

PATIENT
  Age: 53 Year
  Sex: Female

DRUGS (4)
  1. DEPAKOTE TABLETS (DEPAKOTE) (DIVALPROEX SODIUM) (DIVALPROEX SODIUM) [Suspect]
     Indication: SUICIDE ATTEMPT
     Dosage: 90 TABLET, ONCE, PER ORAL
     Route: 048
     Dates: start: 20031228, end: 20031228
  2. BROMAZEPAM [Suspect]
     Indication: SUICIDE ATTEMPT
     Dosage: 6 MG, ONCE
     Dates: start: 20031228, end: 20031228
  3. DANTROLENE SODIUM [Concomitant]
  4. FLUOXETINE HCL [Concomitant]

REACTIONS (20)
  - ALCOHOL USE [None]
  - BLOOD CREATININE INCREASED [None]
  - BRADYCARDIA [None]
  - CIRCULATORY COLLAPSE [None]
  - COMA [None]
  - DRUG HYPERSENSITIVITY [None]
  - HEPATIC ENZYME INCREASED [None]
  - HYPERAMMONAEMIA [None]
  - INTENTIONAL OVERDOSE [None]
  - LEUKOPENIA [None]
  - MELAENA [None]
  - METABOLIC ACIDOSIS [None]
  - MULTIPLE DRUG OVERDOSE [None]
  - MYDRIASIS [None]
  - NERVOUS SYSTEM DISORDER [None]
  - PANCREATITIS [None]
  - PNEUMONIA ASPIRATION [None]
  - POLYURIA [None]
  - SUICIDE ATTEMPT [None]
  - THROMBOCYTOPENIA [None]
